FAERS Safety Report 7197684-4 (Version None)
Quarter: 2010Q4

REPORT INFORMATION
  Report Type: 
  Country: None (occurrence: None)
  Receive Date: 20101227
  Receipt Date: 20101214
  Transmission Date: 20110411
  Serious: Yes (Other)
  Sender: FDA-Public Use
  Company Number: US-ELI_LILLY_AND_COMPANY-US201011001469

PATIENT
  Age: 53 Year
  Sex: Male
  Weight: 55.329 kg

DRUGS (15)
  1. FORTEO [Suspect]
     Indication: OSTEOPOROSIS
     Dosage: 20 UG, DAILY (1/D)
     Route: 058
     Dates: start: 20091226
  2. LACTULOSE [Concomitant]
  3. FERROUS SULFATE [Concomitant]
  4. MEGACE [Concomitant]
  5. PRILOSEC [Concomitant]
  6. DILANTIN [Concomitant]
  7. ZANTAC [Concomitant]
  8. MULTIVITAMIN [Concomitant]
  9. DULCOLAX [Concomitant]
  10. SENNA [Concomitant]
  11. TOPAMAX [Concomitant]
  12. VALPROIC ACID [Concomitant]
  13. REGLAN [Concomitant]
  14. KLONOPIN [Concomitant]
  15. PHENOBARBITAL [Concomitant]
     Dates: start: 20091201

REACTIONS (1)
  - TIBIA FRACTURE [None]
